FAERS Safety Report 9606864 (Version 2)
Quarter: 2014Q2

REPORT INFORMATION
  Report Type: Spontaneous
  Country: US (occurrence: US)
  Receive Date: 20131008
  Receipt Date: 20140519
  Transmission Date: 20141212
  Serious: No
  Sender: FDA-Public Use
  Company Number: US-AMGEN-USASP2013061372

PATIENT
  Age: 65 Year
  Sex: Female
  Weight: 58.05 kg

DRUGS (7)
  1. PROLIA [Suspect]
     Indication: OSTEOPOROSIS POSTMENOPAUSAL
     Dosage: 60 MG, Q6MO
     Route: 058
     Dates: start: 20130307
  2. DILTIAZEM [Concomitant]
     Dosage: 240 MG, QD
  3. SIMVASTATIN [Concomitant]
     Dosage: 40 MG 1 AT HS, UNK
  4. CITRACAL                           /00751520/ [Concomitant]
  5. CENTRUM SILVER                     /02363801/ [Concomitant]
  6. VITAMIN E                          /00110501/ [Concomitant]
     Dosage: 400 IU, UNK
  7. MOVE FREE [Concomitant]

REACTIONS (5)
  - Cystitis [Recovered/Resolved]
  - Myalgia [Recovered/Resolved]
  - Musculoskeletal pain [Recovered/Resolved]
  - Pain in extremity [Recovered/Resolved]
  - Headache [Recovered/Resolved]
